FAERS Safety Report 15894802 (Version 2)
Quarter: 2019Q1

REPORT INFORMATION
  Report Type: Report from Study
  Country: US (occurrence: US)
  Receive Date: 20190131
  Receipt Date: 20190219
  Transmission Date: 20190417
  Serious: Yes (Other)
  Sender: FDA-Public Use
  Company Number: PHEH2019US004692

PATIENT
  Sex: Female

DRUGS (1)
  1. MYFORTIC [Suspect]
     Active Substance: MYCOPHENOLATE SODIUM
     Indication: PRODUCT USED FOR UNKNOWN INDICATION
     Route: 065

REACTIONS (6)
  - Scleroderma [Not Recovered/Not Resolved]
  - Malaise [Unknown]
  - Gait disturbance [Unknown]
  - Renal failure [Unknown]
  - Grip strength decreased [Unknown]
  - Dyspnoea [Unknown]
